FAERS Safety Report 23181285 (Version 2)
Quarter: 2023Q4

REPORT INFORMATION
  Report Type: Report from Study
  Country: AR (occurrence: AR)
  Receive Date: 20231114
  Receipt Date: 20231115
  Transmission Date: 20240109
  Serious: Yes (Other)
  Sender: FDA-Public Use
  Company Number: AR-002147023-NVSC2023AR232447

PATIENT
  Sex: Male

DRUGS (1)
  1. COSENTYX [Suspect]
     Active Substance: SECUKINUMAB
     Indication: Psoriatic arthropathy
     Dosage: UNK
     Route: 058
     Dates: start: 2019

REACTIONS (9)
  - Psoriatic arthropathy [Unknown]
  - Disease progression [Unknown]
  - Malaise [Unknown]
  - Anxiety [Unknown]
  - Psoriasis [Unknown]
  - Gait disturbance [Unknown]
  - Product dose omission issue [Unknown]
  - Muscle disorder [Unknown]
  - Pain [Unknown]

NARRATIVE: CASE EVENT DATE: 20230101
